FAERS Safety Report 16150529 (Version 1)
Quarter: 2019Q2

REPORT INFORMATION
  Report Type: Spontaneous
  Country: US (occurrence: US)
  Receive Date: 20190228
  Receipt Date: 20190228
  Transmission Date: 20190711
  Serious: Yes (Other)
  Sender: FDA-Public Use
  Company Number: None

PATIENT
  Age: 14 Year
  Sex: Male
  Weight: 63.23 kg

DRUGS (1)
  1. GADOLINIUM 529MG/ML [Suspect]
     Active Substance: GADOLINIUM
     Indication: HEADACHE
     Route: 042
     Dates: start: 20190227

REACTIONS (2)
  - Presyncope [None]
  - Hypersensitivity [None]

NARRATIVE: CASE EVENT DATE: 20190227
